FAERS Safety Report 12088934 (Version 1)
Quarter: 2016Q1

REPORT INFORMATION
  Report Type: Spontaneous
  Country: US (occurrence: US)
  Receive Date: 20160218
  Receipt Date: 20160218
  Transmission Date: 20160526
  Serious: No
  Sender: FDA-Public Use
  Company Number: US-GLAXOSMITHKLINE-US2016GSK020422

PATIENT
  Age: 70 Year
  Sex: Male

DRUGS (1)
  1. TANZEUM [Suspect]
     Active Substance: ALBIGLUTIDE
     Indication: PRODUCT USED FOR UNKNOWN INDICATION
     Dosage: 30 MG, WE
     Dates: start: 201512

REACTIONS (8)
  - Device use error [Unknown]
  - Accidental exposure to product [Unknown]
  - Device breakage [Unknown]
  - Nausea [Unknown]
  - Underdose [Unknown]
  - Drug dose omission [Unknown]
  - Device leakage [Unknown]
  - Discomfort [Unknown]

NARRATIVE: CASE EVENT DATE: 201601
